FAERS Safety Report 5135532-4 (Version None)
Quarter: 2006Q4

REPORT INFORMATION
  Report Type: 
  Country: None (occurrence: None)
  Receive Date: 20061026
  Receipt Date: 20060929
  Transmission Date: 20070319
  Serious: Yes (Hospitalization)
  Sender: FDA-Public Use
  Company Number: US-KINGPHARMUSA00001-K200601320

PATIENT
  Age: 61 Year
  Sex: Male
  Weight: 86 kg

DRUGS (8)
  1. ALTACE [Suspect]
     Indication: HYPERTENSION
     Dosage: 10 MG, QD
     Route: 048
     Dates: start: 20040301, end: 20041101
  2. ALTACE [Suspect]
     Dosage: 15 MG, QD
     Route: 048
     Dates: start: 20041101, end: 20041201
  3. ALTACE [Suspect]
     Dosage: UNK, UNK
     Route: 048
     Dates: start: 20050501, end: 20050101
  4. ALTACE [Suspect]
     Dosage: 5 MG, QD
     Route: 048
     Dates: start: 20060501, end: 20060601
  5. FERRLECIT /00023518/ [Concomitant]
     Indication: BLOOD IRON DECREASED
  6. HECTOROL [Concomitant]
     Indication: VITAMIN SUPPLEMENTATION
     Dosage: UNK, PRN
  7. TUMS /00108001/ [Concomitant]
     Indication: BLOOD PHOSPHORUS ABNORMAL
     Route: 048
  8. EPOGEN [Concomitant]
     Indication: HAEMOGLOBIN DECREASED
     Dosage: UNK, TIW
     Route: 042

REACTIONS (6)
  - BLOOD POTASSIUM INCREASED [None]
  - COUGH [None]
  - GASTROINTESTINAL HAEMORRHAGE [None]
  - HYPERTENSION [None]
  - OBLITERATIVE BRONCHIOLITIS [None]
  - PARAESTHESIA [None]
